FAERS Safety Report 4687593-4 (Version None)
Quarter: 2005Q2

REPORT INFORMATION
  Report Type: 
  Country: None (occurrence: None)
  Receive Date: 20050610
  Receipt Date: 20050531
  Transmission Date: 20051028
  Serious: Yes (Death, Other)
  Sender: FDA-Public Use
  Company Number: FR-BRISTOL-MYERS SQUIBB COMPANY-12987020

PATIENT
  Age: 49 Year
  Sex: Female

DRUGS (2)
  1. DOXORUBICIN HCL [Suspect]
  2. DOCETAXEL [Suspect]

REACTIONS (4)
  - ABDOMINAL PAIN [None]
  - FEBRILE NEUTROPENIA [None]
  - INTESTINAL INFARCTION [None]
  - INTESTINAL OBSTRUCTION [None]
